FAERS Safety Report 18997729 (Version 1)
Quarter: 2021Q1

REPORT INFORMATION
  Report Type: Spontaneous
  Country: US (occurrence: US)
  Receive Date: 20210311
  Receipt Date: 20210311
  Transmission Date: 20210420
  Serious: Yes (Other)
  Sender: FDA-Public Use
  Company Number: None

PATIENT
  Age: 73 Year
  Sex: Female

DRUGS (2)
  1. DUREZOL [Suspect]
     Active Substance: DIFLUPREDNATE
     Route: 047
  2. OFLOXACIN. [Suspect]
     Active Substance: OFLOXACIN

REACTIONS (2)
  - Psychotic disorder [None]
  - Rash [None]

NARRATIVE: CASE EVENT DATE: 20210311
